FAERS Safety Report 5025317-1 (Version None)
Quarter: 2006Q2

REPORT INFORMATION
  Report Type: 
  Country: None (occurrence: None)
  Receive Date: 20060426
  Receipt Date: 20060117
  Transmission Date: 20061013
  Serious: Yes (Other)
  Sender: FDA-Public Use
  Company Number: 2006010767

PATIENT
  Age: 55 Year
  Sex: Female
  Weight: 81.6475 kg

DRUGS (6)
  1. LYRICA [Suspect]
     Indication: NEURALGIA
  2. ZOCOR [Concomitant]
  3. DARVOCET [Concomitant]
  4. LIDOCAINE [Concomitant]
  5. MEPERIDINE HCL [Concomitant]
  6. PROMETHAZINE [Concomitant]

REACTIONS (2)
  - BLOOD URINE [None]
  - OEDEMA PERIPHERAL [None]
